FAERS Safety Report 4497986-6 (Version None)
Quarter: 2004Q4

REPORT INFORMATION
  Report Type: 
  Country: None (occurrence: None)
  Receive Date: 20041105
  Receipt Date: 20041103
  Transmission Date: 20050328
  Serious: Yes (Other)
  Sender: FDA-Public Use
  Company Number: KII-2001-0013745

PATIENT
  Age: 29 Year
  Sex: Male

DRUGS (1)
  1. OXYCONTIN [Suspect]
     Dosage: INTRAVENOUS
     Route: 042

REACTIONS (4)
  - DRUG ABUSER [None]
  - GRAND MAL CONVULSION [None]
  - INTENTIONAL MISUSE [None]
  - SELF-MEDICATION [None]
